FAERS Safety Report 10982773 (Version 15)
Quarter: 2020Q1

REPORT INFORMATION
  Report Type: Spontaneous
  Country: US (occurrence: US)
  Receive Date: 20150403
  Receipt Date: 20200325
  Transmission Date: 20200409
  Serious: Yes (Hospitalization, Other)
  Sender: FDA-Public Use
  Company Number: US-009507513-1504USA001266

PATIENT
  Sex: Male
  Weight: 86.17 kg

DRUGS (4)
  1. RITALIN [Concomitant]
     Active Substance: METHYLPHENIDATE HYDROCHLORIDE
     Indication: ATTENTION DEFICIT/HYPERACTIVITY DISORDER
     Dosage: UNK
     Route: 048
     Dates: start: 2002, end: 2012
  2. PROPECIA [Suspect]
     Active Substance: FINASTERIDE
     Indication: ALOPECIA
     Dosage: UNK
     Route: 048
     Dates: start: 20120122, end: 20120130
  3. PROPECIA [Suspect]
     Active Substance: FINASTERIDE
     Indication: ANDROGENETIC ALOPECIA
     Dosage: 1 MG, QD
     Route: 048
     Dates: start: 201011, end: 201105
  4. CIALIS [Suspect]
     Active Substance: TADALAFIL
     Dosage: UNK

REACTIONS (57)
  - Amnesia [Unknown]
  - Feeling abnormal [Not Recovered/Not Resolved]
  - Blood testosterone increased [Unknown]
  - Gastrointestinal motility disorder [Unknown]
  - Liver function test abnormal [Unknown]
  - Irritable bowel syndrome [Unknown]
  - Libido decreased [Not Recovered/Not Resolved]
  - Mental impairment [Not Recovered/Not Resolved]
  - Electrocardiogram abnormal [Not Recovered/Not Resolved]
  - Disturbance in attention [Unknown]
  - Poor quality sleep [Unknown]
  - Psychomotor hyperactivity [Unknown]
  - Organic erectile dysfunction [Unknown]
  - Semen volume decreased [Not Recovered/Not Resolved]
  - Semen analysis abnormal [Not Recovered/Not Resolved]
  - Drug hypersensitivity [Unknown]
  - Loss of libido [Not Recovered/Not Resolved]
  - Muscle atrophy [Not Recovered/Not Resolved]
  - Fatigue [Not Recovered/Not Resolved]
  - Carotid bruit [Not Recovered/Not Resolved]
  - Generalised anxiety disorder [Not Recovered/Not Resolved]
  - Insomnia [Recovered/Resolved]
  - Mitral valve prolapse [Unknown]
  - Blood testosterone free increased [Unknown]
  - Foot fracture [Unknown]
  - Vision blurred [Unknown]
  - Drug hypersensitivity [Unknown]
  - Overweight [Unknown]
  - Sinusitis [Unknown]
  - Large intestine polyp [Unknown]
  - Major depression [Unknown]
  - Memory impairment [Unknown]
  - Headache [Unknown]
  - Decreased appetite [Unknown]
  - Hepatic steatosis [Unknown]
  - Anogenital warts [Unknown]
  - Cardiac murmur [Unknown]
  - Iron deficiency [Unknown]
  - Testicular pain [Unknown]
  - Confusional state [Not Recovered/Not Resolved]
  - Polycythaemia [Unknown]
  - Gastrointestinal bacterial overgrowth [Recovered/Resolved]
  - Fibrosis [Not Recovered/Not Resolved]
  - Actinic keratosis [Unknown]
  - Sexual dysfunction [Not Recovered/Not Resolved]
  - Depression [Not Recovered/Not Resolved]
  - Testicular failure [Unknown]
  - Erectile dysfunction [Not Recovered/Not Resolved]
  - Cognitive disorder [Not Recovered/Not Resolved]
  - Headache [Unknown]
  - Libido increased [Not Recovered/Not Resolved]
  - Penis disorder [Not Recovered/Not Resolved]
  - Genital hypoaesthesia [Not Recovered/Not Resolved]
  - Oestradiol increased [Unknown]
  - Weight fluctuation [Unknown]
  - Genital lesion [Unknown]
  - Abdominal distension [Unknown]

NARRATIVE: CASE EVENT DATE: 2011
